FAERS Safety Report 4367942-7 (Version None)
Quarter: 2004Q2

REPORT INFORMATION
  Report Type: 
  Country: None (occurrence: None)
  Receive Date: 20040601
  Receipt Date: 20031217
  Transmission Date: 20050107
  Serious: Yes (Other)
  Sender: FDA-Public Use
  Company Number: 2003125933

PATIENT
  Age: 33 Year
  Sex: Female
  Weight: 66.2252 kg

DRUGS (4)
  1. LISTERINE (EUCALYPTOL, MENTHOL, METHYL SALICYLATE, THYMOL) [Suspect]
     Indication: ACCIDENTAL EXPOSURE
     Dosage: 1 CAPFUL QD, ORAL
     Route: 048
  2. PREDNISONE TAB [Concomitant]
  3. CLOPIDOGREL BISULFATE [Concomitant]
  4. FOLIC ACID [Concomitant]

REACTIONS (8)
  - ACCIDENTAL EXPOSURE [None]
  - CEREBRAL PALSY [None]
  - CEREBROVASCULAR ACCIDENT [None]
  - DRUG EXPOSURE DURING PREGNANCY [None]
  - PRE-ECLAMPSIA [None]
  - PREGNANCY [None]
  - PREMATURE BABY [None]
  - SYSTEMIC LUPUS ERYTHEMATOSUS [None]
